FAERS Safety Report 7472878-9 (Version None)
Quarter: 2011Q2

REPORT INFORMATION
  Report Type: 
  Country: None (occurrence: None)
  Receive Date: 20110503
  Receipt Date: 20110421
  Transmission Date: 20111010
  Serious: Yes (Hospitalization)
  Sender: FDA-Public Use
  Company Number: TPA2011A01155

PATIENT
  Age: 59 Year
  Sex: Female

DRUGS (3)
  1. PIOGLITAZONE HYDROCHLORIDE [Suspect]
     Indication: TYPE 2 DIABETES MELLITUS
     Dosage: 45 MG, 1 IN 1 D, ORAL
     Route: 048
     Dates: start: 20090701, end: 20100624
  2. METFORMIN HCL [Suspect]
     Indication: TYPE 2 DIABETES MELLITUS
     Dosage: ORAL
     Route: 048
  3. GLIMEPIRIDE [Suspect]
     Indication: TYPE 2 DIABETES MELLITUS
     Dosage: 4 MG, 1 IN 1 D, ORAL
     Route: 048
     Dates: start: 20090507

REACTIONS (10)
  - GAIT DISTURBANCE [None]
  - PAIN IN EXTREMITY [None]
  - DYSPNOEA EXERTIONAL [None]
  - OEDEMA PERIPHERAL [None]
  - COUGH [None]
  - FLUID OVERLOAD [None]
  - EJECTION FRACTION DECREASED [None]
  - ILIOTIBIAL BAND SYNDROME [None]
  - CARDIAC DISORDER [None]
  - GENERALISED OEDEMA [None]
